FAERS Safety Report 14199615 (Version 1)
Quarter: 2017Q4

REPORT INFORMATION
  Report Type: Spontaneous
  Country: US (occurrence: US)
  Receive Date: 20171117
  Receipt Date: 20171117
  Transmission Date: 20180321
  Serious: Yes (Hospitalization)
  Sender: FDA-Public Use
  Company Number: US-OREXIGEN THERAPEUTICS, INC.-2034527

PATIENT
  Age: 79 Year
  Sex: Female

DRUGS (2)
  1. FENTANYL. [Suspect]
     Active Substance: FENTANYL
     Route: 065
  2. CONTRAVE [Suspect]
     Active Substance: BUPROPION HYDROCHLORIDE\NALTREXONE HYDROCHLORIDE
     Indication: PRODUCT USED FOR UNKNOWN INDICATION
     Route: 065

REACTIONS (4)
  - Hypertension [Unknown]
  - Withdrawal syndrome [Unknown]
  - Tachycardia [Unknown]
  - Delirium [Unknown]
